FAERS Safety Report 8909275 (Version 2)
Quarter: 2013Q1

REPORT INFORMATION
  Report Type: Spontaneous
  Country: US (occurrence: None)
  Receive Date: 20121022
  Receipt Date: 20121116
  Transmission Date: 20140127
  Serious: Yes (Other)
  Sender: FDA-Public Use
  Company Number: 2012033654

PATIENT
  Sex: Female
  Weight: 65.77 kg

DRUGS (10)
  1. HIZENTRA (IMMUNOGLOBULIN HUMAN NORMAL) [Suspect]
     Indication: IMMUNODEFICIENCY COMMON VARIABLE
     Dosage: (2 GM SITES OVER 1 HOUR)
     Route: 058
  2. FERROUS SUFLATE (FERROUS SULFATE) [Concomitant]
  3. EPIPEN (EPINEPHRINE) [Concomitant]
  4. ACETAMINOPHEN (PARACETAMOL) [Concomitant]
  5. DIPHENHYDRAMINE (DIPHENHYDRAMINE) [Concomitant]
  6. PRENATAL FORMULA TABLET (PRENATAL VITAMINS) [Concomitant]
  7. DIPHENHYDRAMINE HYDROCHLORIDE (DIPHENHYDRAMINE HYDROCHLORIDE) [Concomitant]
  8. LIDOCAINE/PRILOCAINE (EMLA /00675501/) [Concomitant]
  9. NORMAL SALINE (SODIUM CHLORIDE) [Concomitant]
  10. GAMMAGARD (IMMUNOGLOBULIN HUMAN NORMAL) [Concomitant]

REACTIONS (3)
  - Full blood count decreased [None]
  - Bone marrow failure [None]
  - Cough [None]
